FAERS Safety Report 5806655-9 (Version None)
Quarter: 2008Q3

REPORT INFORMATION
  Report Type: 
  Country: None (occurrence: None)
  Receive Date: 20080710
  Receipt Date: 20080625
  Transmission Date: 20090109
  Serious: Yes (Hospitalization)
  Sender: FDA-Public Use
  Company Number: FR-GENENTECH-263862

PATIENT
  Age: 62 Year
  Sex: Female

DRUGS (2)
  1. AVASTIN [Suspect]
     Indication: OVARIAN CANCER
  2. TAXOL [Concomitant]
     Indication: DRUG USE FOR UNKNOWN INDICATION

REACTIONS (1)
  - SPLENIC RUPTURE [None]
